FAERS Safety Report 6139143-3 (Version None)
Quarter: 2009Q2

REPORT INFORMATION
  Report Type: 
  Country: None (occurrence: None)
  Receive Date: 20090401
  Receipt Date: 20090325
  Transmission Date: 20091009
  Serious: Yes (Hospitalization, Other)
  Sender: FDA-Public Use
  Company Number: US-PFIZER INC-2008006775

PATIENT
  Sex: Male
  Weight: 101 kg

DRUGS (2)
  1. SUTENT [Suspect]
     Indication: METASTATIC RENAL CELL CARCINOMA
     Route: 048
     Dates: start: 20070101, end: 20070801
  2. SORAFENIB TOSILATE [Suspect]
     Indication: METASTASIS
     Dates: start: 20070803

REACTIONS (6)
  - BLOOD CREATINE PHOSPHOKINASE INCREASED [None]
  - CHEST PAIN [None]
  - DISEASE PROGRESSION [None]
  - ELECTROCARDIOGRAM ST SEGMENT ELEVATION [None]
  - METASTATIC RENAL CELL CARCINOMA [None]
  - MYOCARDIAL INFARCTION [None]
